FAERS Safety Report 4996305-6 (Version None)
Quarter: 2006Q2

REPORT INFORMATION
  Report Type: 
  Country: None (occurrence: None)
  Receive Date: 20060505
  Receipt Date: 20060421
  Transmission Date: 20061013
  Serious: Yes (Hospitalization)
  Sender: FDA-Public Use
  Company Number: 2006RR-02091

PATIENT
  Age: 15 Year
  Sex: Female

DRUGS (2)
  1. DOXYCYCLINE [Suspect]
     Indication: ACNE
     Dosage: 100 MG, QD, ORAL
     Route: 048
  2. GESTODEN-ETHYNYLOESTRADIOL [Concomitant]

REACTIONS (4)
  - ASTHENIA [None]
  - DRUG ADMINISTRATION ERROR [None]
  - OESOPHAGEAL ULCER [None]
  - WEIGHT DECREASED [None]
